FAERS Safety Report 5385200-9 (Version None)
Quarter: 2007Q3

REPORT INFORMATION
  Report Type: 
  Country: None (occurrence: None)
  Receive Date: 20070706
  Receipt Date: 20070706
  Transmission Date: 20080115
  Serious: No
  Sender: FDA-Public Use
  Company Number: None

PATIENT
  Sex: Female
  Weight: 72.1219 kg

DRUGS (1)
  1. AMBIEN [Suspect]
     Indication: INSOMNIA
     Dosage: 5 MG -BROKE IN HALF- ONE TIME DOSE PO
     Route: 048
     Dates: start: 20070619, end: 20070619

REACTIONS (1)
  - ROTATOR CUFF SYNDROME [None]
